FAERS Safety Report 14016421 (Version 1)
Quarter: 2017Q3

REPORT INFORMATION
  Report Type: Spontaneous
  Country: US (occurrence: None)
  Receive Date: 20170927
  Receipt Date: 20170927
  Transmission Date: 20171128
  Serious: No
  Sender: FDA-Public Use
  Company Number: None

PATIENT
  Age: 57 Year
  Sex: Female
  Weight: 77.11 kg

DRUGS (6)
  1. AUGMENTIN [Concomitant]
     Active Substance: AMOXICILLIN\CLAVULANATE POTASSIUM
  2. MELOXICAM (GENERIC SUBSTITUTE FOR MOBIC) [Suspect]
     Active Substance: MELOXICAM
     Indication: EXOSTOSIS
     Route: 048
     Dates: start: 20170829, end: 20170901
  3. MELOXICAM (GENERIC SUBSTITUTE FOR MOBIC) [Suspect]
     Active Substance: MELOXICAM
     Indication: SWELLING
     Route: 048
     Dates: start: 20170829, end: 20170901
  4. MELOXICAM (GENERIC SUBSTITUTE FOR MOBIC) [Suspect]
     Active Substance: MELOXICAM
     Indication: ARTHRALGIA
     Route: 048
     Dates: start: 20170829, end: 20170901
  5. AMOX CLAV [Concomitant]
     Active Substance: AMOXICILLIN\CLAVULANATE POTASSIUM
  6. CALCIUM/MAGNESIUM [Concomitant]
     Active Substance: CALCIUM\MAGNESIUM

REACTIONS (1)
  - Hypersensitivity [None]

NARRATIVE: CASE EVENT DATE: 20170901
